FAERS Safety Report 5588521-X (Version None)
Quarter: 2007Q4

REPORT INFORMATION
  Report Type: 
  Country: None (occurrence: None)
  Receive Date: 20071212
  Receipt Date: 20070828
  Transmission Date: 20080405
  Serious: No
  Sender: FDA-Public Use
  Company Number: 2007RL000356

PATIENT
  Age: 57 Year
  Sex: Female
  Weight: 81.6475 kg

DRUGS (6)
  1. OMACOR [Suspect]
     Indication: BLOOD CHOLESTEROL INCREASED
     Dosage: 3 GM;QD;PO ; 1 GM;QD;PO
     Route: 048
     Dates: start: 20070601, end: 20070801
  2. OMACOR [Suspect]
     Indication: BLOOD CHOLESTEROL INCREASED
     Dosage: 3 GM;QD;PO ; 1 GM;QD;PO
     Route: 048
     Dates: start: 20070801, end: 20070807
  3. CYTOMEL [Concomitant]
  4. ZYRTEC [Concomitant]
  5. CLONAZEPAM [Concomitant]
  6. VITAMINS NOS [Concomitant]

REACTIONS (7)
  - ALANINE AMINOTRANSFERASE INCREASED [None]
  - ASPARTATE AMINOTRANSFERASE INCREASED [None]
  - BLOOD CHOLESTEROL INCREASED [None]
  - BLOOD TRIGLYCERIDES INCREASED [None]
  - INTENTIONAL DRUG MISUSE [None]
  - NON-HIGH-DENSITY LIPOPROTEIN CHOLESTEROL INCREASED [None]
  - OFF LABEL USE [None]
